FAERS Safety Report 16714832 (Version 2)
Quarter: 2019Q3

REPORT INFORMATION
  Report Type: Spontaneous
  Country: AU (occurrence: AU)
  Receive Date: 20190819
  Receipt Date: 20190820
  Transmission Date: 20191005
  Serious: Yes (Other)
  Sender: FDA-Public Use
  Company Number: AU-009507513-1908AUS005628

PATIENT
  Age: 4 Year
  Sex: Female

DRUGS (9)
  1. HYDROCORTISONE ACETATE. [Suspect]
     Active Substance: HYDROCORTISONE ACETATE
     Indication: ECZEMA
     Dosage: UNK UNK, TID
     Dates: start: 20150410, end: 20150413
  2. REDIPRED [Suspect]
     Active Substance: PREDNISOLONE\PREDNISOLONE SODIUM PHOSPHATE
     Route: 048
  3. NASONEX [Suspect]
     Active Substance: MOMETASONE FUROATE
     Indication: RHINITIS ALLERGIC
     Dosage: UNK, BID
  4. DERMAID (HYDROCORTISONE) [Suspect]
     Active Substance: HYDROCORTISONE
  5. CORTIVAL (BETAMETHASONE VALERATE) [Suspect]
     Active Substance: BETAMETHASONE VALERATE
     Dosage: UNK
  6. ELEUPHRAT [Suspect]
     Active Substance: BETAMETHASONE DIPROPIONATE
     Dosage: 0.05% FOR 4 DAYS ON/3DAYS OFF
  7. TACROLIMUS. [Suspect]
     Active Substance: TACROLIMUS
  8. BETNOVATE [Suspect]
     Active Substance: BETAMETHASONE
  9. HYDROCORTISONE ACETATE. [Suspect]
     Active Substance: HYDROCORTISONE ACETATE
     Dosage: UNK

REACTIONS (1)
  - Steroid withdrawal syndrome [Recovered/Resolved]

NARRATIVE: CASE EVENT DATE: 20150910
